FAERS Safety Report 9142466 (Version 2)
Quarter: 2013Q3

REPORT INFORMATION
  Report Type: Spontaneous
  Country: US (occurrence: US)
  Receive Date: 20130306
  Receipt Date: 20130906
  Transmission Date: 20140515
  Serious: No
  Sender: FDA-Public Use
  Company Number: US-BIOGENIDEC-2013BI019156

PATIENT
  Age: 21 Year
  Sex: Female

DRUGS (1)
  1. TYSABRI [Suspect]
     Indication: MULTIPLE SCLEROSIS
     Route: 042
     Dates: start: 20120522

REACTIONS (12)
  - Pain [Recovered/Resolved with Sequelae]
  - Joint dislocation [Recovered/Resolved with Sequelae]
  - Joint swelling [Recovered/Resolved with Sequelae]
  - Loss of control of legs [Recovered/Resolved]
  - Back pain [Recovered/Resolved]
  - Stress [Unknown]
  - Tremor [Unknown]
  - Optic neuritis [Unknown]
  - Fungal infection [Unknown]
  - Herpes zoster [Recovered/Resolved]
  - Tooth infection [Not Recovered/Not Resolved]
  - Urinary tract infection [Unknown]
